FAERS Safety Report 8359145-6 (Version None)
Quarter: 2012Q2

REPORT INFORMATION
  Report Type: 
  Country: None (occurrence: None)
  Receive Date: 20120511
  Receipt Date: 20120511
  Transmission Date: 20120825
  Serious: Yes (Life-Threatening, Hospitalization, Disabling, Other)
  Sender: FDA-Public Use
  Company Number: None

PATIENT
  Age: 58 Year
  Sex: Female
  Weight: 111.1313 kg

DRUGS (4)
  1. VICTOZA [Suspect]
     Indication: TYPE 2 DIABETES MELLITUS
     Dosage: 1.8 MG ONCE DAILY SQ
     Route: 058
     Dates: start: 20100604, end: 20110604
  2. METFORMIN HCL [Concomitant]
  3. TIAZAC [Concomitant]
  4. ZOCOR [Concomitant]

REACTIONS (8)
  - HEPATIC NEOPLASM MALIGNANT [None]
  - INJECTION SITE NODULE [None]
  - INJECTION SITE PAIN [None]
  - PANCREATIC CARCINOMA [None]
  - MALIGNANT SPLENIC NEOPLASM [None]
  - INJECTION SITE IRRITATION [None]
  - LUNG NEOPLASM MALIGNANT [None]
  - SKIN CANCER METASTATIC [None]
